FAERS Safety Report 6484679-9 (Version None)
Quarter: 2009Q4

REPORT INFORMATION
  Report Type: 
  Country: None (occurrence: None)
  Receive Date: 20091209
  Receipt Date: 20091127
  Transmission Date: 20100525
  Serious: Yes (Other)
  Sender: FDA-Public Use
  Company Number: GB-PFIZER INC-2009254849

PATIENT
  Age: 35 Year
  Sex: Female
  Weight: 60 kg

DRUGS (1)
  1. SERTRALINE HYDROCHLORIDE [Suspect]
     Dosage: 50 MG, 1X/DAY
     Route: 048

REACTIONS (2)
  - HYPERPROLACTINAEMIA [None]
  - SURGERY [None]
